FAERS Safety Report 5584023-5 (Version None)
Quarter: 2008Q1

REPORT INFORMATION
  Report Type: 
  Country: None (occurrence: None)
  Receive Date: 20080104
  Receipt Date: 20080104
  Transmission Date: 20080703
  Serious: Yes (Other)
  Sender: FDA-Public Use
  Company Number: None

PATIENT
  Age: 64 Year
  Sex: Male
  Weight: 83.9154 kg

DRUGS (1)
  1. CARVEDILOL [Suspect]
     Indication: CARDIAC DISORDER
     Dosage: 25 M 2X

REACTIONS (2)
  - BLOOD PRESSURE INCREASED [None]
  - FEELING HOT [None]
